FAERS Safety Report 13557256 (Version 1)
Quarter: 2017Q2

REPORT INFORMATION
  Report Type: Spontaneous
  Country: US (occurrence: US)
  Receive Date: 20170517
  Receipt Date: 20170517
  Transmission Date: 20170830
  Serious: Yes (Death)
  Sender: FDA-Public Use
  Company Number: None

PATIENT
  Age: 63 Year
  Sex: Female

DRUGS (15)
  1. HYDROMORPHON [Concomitant]
     Active Substance: HYDROMORPHONE
  2. CENTRUM [Concomitant]
     Active Substance: VITAMINS
  3. LONSURF [Suspect]
     Active Substance: TIPIRACIL HYDROCHLORIDE\TRIFLURIDINE
     Indication: COLON CANCER
     Dosage: ?DS1-5 8-12
     Route: 048
     Dates: start: 201702, end: 201704
  4. MACROBID [Concomitant]
     Active Substance: NITROFURANTOIN\NITROFURANTOIN MONOHYDRATE
  5. MIRTAZAPINE. [Concomitant]
     Active Substance: MIRTAZAPINE
  6. TAMSULOSIN [Concomitant]
     Active Substance: TAMSULOSIN
  7. VITAMIN B6 [Concomitant]
     Active Substance: PYRIDOXINE HYDROCHLORIDE
  8. DOCUSATE SOD [Concomitant]
  9. ATORVASTATIN [Concomitant]
     Active Substance: ATORVASTATIN
  10. OSCAL [Concomitant]
     Active Substance: CALCIUM CARBONATE
  11. PANTOPRAZOLE [Concomitant]
     Active Substance: PANTOPRAZOLE
  12. OXYCODONE AND ACETAMINOPHEN [Concomitant]
     Active Substance: ACETAMINOPHEN\OXYCODONE HYDROCHLORIDE
  13. PROCHLORPER [Concomitant]
  14. ALENDRONATE [Concomitant]
     Active Substance: ALENDRONATE SODIUM
  15. FENTANYL. [Concomitant]
     Active Substance: FENTANYL

REACTIONS (1)
  - Death [None]

NARRATIVE: CASE EVENT DATE: 201702
